FAERS Safety Report 6011887-3 (Version None)
Quarter: 2008Q4

REPORT INFORMATION
  Report Type: 
  Country: None (occurrence: None)
  Receive Date: 20081218
  Receipt Date: 20080926
  Transmission Date: 20090506
  Serious: No
  Sender: FDA-Public Use
  Company Number: US-ASTRAZENECA-2008UW20633

PATIENT
  Age: 70 Year
  Sex: Male
  Weight: 93 kg

DRUGS (6)
  1. CRESTOR [Suspect]
     Indication: STENT PLACEMENT
     Route: 048
     Dates: start: 20071201
  2. METOPROLOL SUCCINATE [Concomitant]
  3. ZETIA [Concomitant]
  4. SYNTHROID [Concomitant]
  5. PLAVIX [Concomitant]
  6. ASPIRIN [Concomitant]

REACTIONS (2)
  - BREAST SWELLING [None]
  - NIPPLE PAIN [None]
